FAERS Safety Report 6809370-8 (Version None)
Quarter: 2010Q2

REPORT INFORMATION
  Report Type: 
  Country: None (occurrence: None)
  Receive Date: 20100630
  Receipt Date: 20100622
  Transmission Date: 20101027
  Serious: Yes (Hospitalization)
  Sender: FDA-Public Use
  Company Number: JP-ASTRAZENECA-2010SE11472

PATIENT
  Age: 24124 Day
  Sex: Female
  Weight: 39.6 kg

DRUGS (15)
  1. SEROQUEL [Suspect]
     Indication: SCHIZOPHRENIA
     Route: 048
     Dates: start: 20100128, end: 20100203
  2. SEROQUEL [Suspect]
     Route: 048
     Dates: start: 20100204, end: 20100210
  3. SEROQUEL [Suspect]
     Route: 048
     Dates: start: 20100211, end: 20100217
  4. SEROQUEL [Suspect]
     Route: 048
     Dates: start: 20100218, end: 20100222
  5. SEROQUEL [Suspect]
     Route: 048
     Dates: start: 20100223, end: 20100225
  6. SEROQUEL [Suspect]
     Route: 048
     Dates: start: 20100226, end: 20100305
  7. BLONANSERIN [Concomitant]
     Indication: SCHIZOPHRENIA
     Route: 048
     Dates: start: 20100128, end: 20100305
  8. FLUNITRAZEPAM [Concomitant]
     Indication: INSOMNIA
     Route: 048
     Dates: start: 20100128, end: 20100224
  9. BROTIZOLAM [Concomitant]
     Indication: INSOMNIA
     Route: 048
     Dates: start: 20100128, end: 20100224
  10. LEVOMEPROMAZINE MALEATE [Concomitant]
     Indication: SCHIZOPHRENIA
     Route: 048
     Dates: start: 20100128, end: 20100224
  11. VALPROATE SODIUM [Concomitant]
     Indication: SCHIZOPHRENIA
     Route: 048
     Dates: start: 20100107, end: 20100210
  12. MAGNESIUM OXIDE [Concomitant]
     Indication: CONSTIPATION
     Dates: start: 20100128, end: 20100301
  13. SENNOSIDE [Concomitant]
     Indication: CONSTIPATION
     Dates: start: 20100128, end: 20100301
  14. ETILEFRINE HYDROCHLORIDE [Concomitant]
     Indication: HYPOTENSION
     Dates: start: 20100128, end: 20100301
  15. TROXIPIDE [Concomitant]
     Indication: GASTRITIS
     Dates: start: 20100128, end: 20100301

REACTIONS (2)
  - BLOOD CREATINE PHOSPHOKINASE INCREASED [None]
  - ILEUS PARALYTIC [None]
